FAERS Safety Report 6368855-1 (Version None)
Quarter: 2009Q3

REPORT INFORMATION
  Report Type: 
  Country: None (occurrence: None)
  Receive Date: 20090916
  Receipt Date: 20090908
  Transmission Date: 20100115
  Serious: Yes (Hospitalization)
  Sender: FDA-Public Use
  Company Number: ADR20392009

PATIENT
  Age: 58 Year
  Sex: Female

DRUGS (6)
  1. SIMVASTATIN [Suspect]
     Dosage: 40MG, ORAL
     Route: 048
  2. ZOPICLONE (MFR: UNKNOWN) [Suspect]
     Dosage: 10 MG
  3. CLOMIPRAMINE HCL [Suspect]
     Dosage: 25MG/120MG/200MG
     Dates: start: 19930101, end: 20071210
  4. DEPAKOTE [Concomitant]
  5. FLUOXETINE [Concomitant]
  6. SEROQUEL [Concomitant]

REACTIONS (13)
  - ANXIETY [None]
  - CONDITION AGGRAVATED [None]
  - DEPRESSED MOOD [None]
  - DISTURBANCE IN SEXUAL AROUSAL [None]
  - EMOTIONAL DISTRESS [None]
  - EXTRASYSTOLES [None]
  - HEART RATE IRREGULAR [None]
  - NERVOUS SYSTEM DISORDER [None]
  - NIGHTMARE [None]
  - ORTHOSTATIC HYPOTENSION [None]
  - PALPITATIONS [None]
  - SOMNOLENCE [None]
  - SUICIDAL IDEATION [None]
